FAERS Safety Report 18035786 (Version 2)
Quarter: 2020Q3

REPORT INFORMATION
  Report Type: Report from Study
  Country: US (occurrence: US)
  Receive Date: 20200717
  Receipt Date: 20200723
  Transmission Date: 20201103
  Serious: Yes (Hospitalization)
  Sender: FDA-Public Use
  Company Number: US-ROCHE-1835563

PATIENT
  Age: 63 Year
  Sex: Female
  Weight: 44.4 kg

DRUGS (2)
  1. TRASTUZUMAB. [Suspect]
     Active Substance: TRASTUZUMAB
     Dosage: MAINTENANCE DOSE
     Route: 042
     Dates: start: 20160505, end: 20160915
  2. TRASTUZUMAB. [Suspect]
     Active Substance: TRASTUZUMAB
     Indication: UTERINE CANCER
     Dosage: LOADING DOSE
     Route: 041
     Dates: start: 20160414

REACTIONS (7)
  - Nausea [Unknown]
  - Lymphadenopathy [Unknown]
  - Abdominal pain [Unknown]
  - Pelvic neoplasm [Unknown]
  - Pyrexia [Recovered/Resolved]
  - Oliguria [Unknown]
  - Hydronephrosis [Unknown]

NARRATIVE: CASE EVENT DATE: 20160918
